FAERS Safety Report 7156024-7 (Version None)
Quarter: 2010Q4

REPORT INFORMATION
  Report Type: 
  Country: None (occurrence: None)
  Receive Date: 20101123
  Receipt Date: 20100910
  Transmission Date: 20110411
  Serious: Yes (Other)
  Sender: FDA-Public Use
  Company Number: 015762

PATIENT
  Sex: Male
  Weight: 32.6 kg

DRUGS (5)
  1. CIMZIA [Suspect]
     Indication: CROHN'S DISEASE
     Dosage: 200 MG 1X/MONTH SUBCUTANEOUS
     Route: 058
     Dates: start: 20100301
  2. FLINTSTONE VITAMINS W/IRON [Concomitant]
  3. AZATHIOPRINE [Concomitant]
  4. URSO 250 [Concomitant]
  5. AMITRIPTYLINE HCL [Concomitant]

REACTIONS (3)
  - ANAEMIA [None]
  - DRUG INEFFECTIVE [None]
  - INJECTION SITE PAIN [None]
